FAERS Safety Report 9741734 (Version 2)
Quarter: 2013Q4

REPORT INFORMATION
  Report Type: Spontaneous
  Country: SE (occurrence: SE)
  Receive Date: 20131210
  Receipt Date: 20131220
  Transmission Date: 20140711
  Serious: Yes (Other)
  Sender: FDA-Public Use
  Company Number: SE-BRISTOL-MYERS SQUIBB COMPANY-19863059

PATIENT
  Age: 69 Year
  Sex: Male
  Weight: 81 kg

DRUGS (1)
  1. YERVOY [Suspect]
     Indication: MALIGNANT MELANOMA
     Dosage: 1DF: 5MG/ML, 2 INFUSION
     Dates: start: 20131015

REACTIONS (5)
  - Myopia [Not Recovered/Not Resolved]
  - Skin toxicity [Unknown]
  - Pruritus [Unknown]
  - Vision blurred [Unknown]
  - Rash [Unknown]
